FAERS Safety Report 5400144-1 (Version None)
Quarter: 2007Q3

REPORT INFORMATION
  Report Type: 
  Country: None (occurrence: None)
  Receive Date: 20070730
  Receipt Date: 20070724
  Transmission Date: 20080115
  Serious: Yes (Other)
  Sender: FDA-Public Use
  Company Number: DE-BAYER-200710836BVD

PATIENT
  Age: 11 Year
  Sex: Female
  Weight: 12 kg

DRUGS (1)
  1. CIPROFLOXACIN HCL [Suspect]

REACTIONS (1)
  - RENAL FAILURE ACUTE [None]
